FAERS Safety Report 25282424 (Version 2)
Quarter: 2025Q2

REPORT INFORMATION
  Report Type: Report from Study
  Country: US (occurrence: US)
  Receive Date: 20250508
  Receipt Date: 20250519
  Transmission Date: 20250717
  Serious: Yes (Disabling, Other)
  Sender: AUROBINDO
  Company Number: US-MLMSERVICE-20250422-PI482668-00312-2

PATIENT
  Age: 68 Year
  Sex: Male

DRUGS (2)
  1. TESTOSTERONE [Suspect]
     Active Substance: TESTOSTERONE
     Indication: Hormone replacement therapy
     Route: 065
  2. LEVOTHYROXINE [Concomitant]
     Active Substance: LEVOTHYROXINE
     Indication: Thyroid hormone replacement therapy
     Route: 065

REACTIONS (4)
  - Optic ischaemic neuropathy [Unknown]
  - Visual impairment [Not Recovered/Not Resolved]
  - Polycythaemia [Unknown]
  - Pupillary reflex impaired [Unknown]
